FAERS Safety Report 10284494 (Version 1)
Quarter: 2014Q3

REPORT INFORMATION
  Report Type: Spontaneous
  Country: US (occurrence: None)
  Receive Date: 20140703
  Receipt Date: 20140703
  Transmission Date: 20150326
  Serious: Yes (Hospitalization)
  Sender: FDA-Public Use
  Company Number: None

PATIENT
  Age: 67 Year
  Sex: Male

DRUGS (1)
  1. INTRON A [Suspect]
     Active Substance: INTERFERON ALFA-2B
     Dates: start: 20130501

REACTIONS (8)
  - Myalgia [None]
  - Sepsis syndrome [None]
  - Cellulitis [None]
  - Fatigue [None]
  - Memory impairment [None]
  - Asthenia [None]
  - Arthritis [None]
  - Tachycardia [None]

NARRATIVE: CASE EVENT DATE: 20130509
